FAERS Safety Report 7834931-7 (Version None)
Quarter: 2011Q4

REPORT INFORMATION
  Report Type: 
  Country: None (occurrence: None)
  Receive Date: 20111024
  Receipt Date: 20111013
  Transmission Date: 20120403
  Serious: Yes (Death, Other)
  Sender: FDA-Public Use
  Company Number: US-BAXTER-2011BH032264

PATIENT
  Sex: Female

DRUGS (2)
  1. DIANEAL [Suspect]
     Indication: PERITONEAL DIALYSIS
     Route: 033
     Dates: start: 20110601
  2. DIANEAL [Suspect]
     Route: 033
     Dates: start: 20110601

REACTIONS (3)
  - DEATH [None]
  - SEPSIS [None]
  - DECUBITUS ULCER [None]
